FAERS Safety Report 5405830-5 (Version None)
Quarter: 2007Q3

REPORT INFORMATION
  Report Type: 
  Country: None (occurrence: None)
  Receive Date: 20070802
  Receipt Date: 20070726
  Transmission Date: 20080115
  Serious: Yes (Other)
  Sender: FDA-Public Use
  Company Number: TPA2007A01434

PATIENT
  Age: 60 Year
  Sex: Male
  Weight: 80.9 kg

DRUGS (20)
  1. PIOGLITAZONE HCL [Suspect]
     Indication: GLUCOSE TOLERANCE IMPAIRED
     Dosage: 1 IN 1 D, PER ORAL
     Route: 048
     Dates: start: 20040805, end: 20040907
  2. ATENOLOL [Concomitant]
  3. POTASSIUM CHLORIDE [Concomitant]
  4. CRESTOR [Concomitant]
  5. PLAVIX [Concomitant]
  6. INDAPAMIDE [Concomitant]
  7. DICLOFENAC (DICLOFENAC) [Concomitant]
  8. ZOCOR [Concomitant]
  9. LISINOPRIL [Concomitant]
  10. MULTIPLE VITAMIN (ERGOCALCIFEROL, ASCROBIC ACID, TOCOPHEROL, FOLIC ACI [Concomitant]
  11. FLAX SEED OIL (LINUM USITATISSIUMUM SEED OIL) [Concomitant]
  12. LECITHIN (LECITHIN) [Concomitant]
  13. SAW PALMETTO (SERENOA REPENS) [Concomitant]
  14. DHEA (PRASTERONE) [Concomitant]
  15. OCUVITE W/LUTEIN (ASCORBIC ACID, PROGESTERONE, TOCOPHERYL ACETATE, ZIN [Concomitant]
  16. GLUCOSAMINE (GLUCOSAMINE) [Concomitant]
  17. B-6 (PYRIDOXINE HYDROCHLORIDE) [Concomitant]
  18. B-12 (CYANOCOBALAMIN) [Concomitant]
  19. FOLIC ACID [Concomitant]
  20. CALCIUM (CALCIUM) [Concomitant]

REACTIONS (2)
  - AVULSION FRACTURE [None]
  - HAND FRACTURE [None]
